FAERS Safety Report 7496264-0 (Version None)
Quarter: 2011Q2

REPORT INFORMATION
  Report Type: 
  Country: None (occurrence: None)
  Receive Date: 20110523
  Receipt Date: 20110523
  Transmission Date: 20111010
  Serious: Yes (Hospitalization)
  Sender: FDA-Public Use
  Company Number: BE-PFIZER INC-2008100969

PATIENT
  Age: 52 Year
  Sex: Female
  Weight: 60 kg

DRUGS (28)
  1. BLINDED ANIDULAFUNGIN [Suspect]
     Indication: ASPERGILLOSIS
     Dosage: 100 UNK, UNK
     Route: 042
     Dates: start: 20081013, end: 20081019
  2. LORAMET [Concomitant]
     Dosage: UNK
     Route: 048
     Dates: start: 20080929
  3. MEROPENEM [Concomitant]
     Dosage: UNK
     Route: 042
     Dates: start: 20081004
  4. ISOBETADINE [Concomitant]
     Dosage: UNK
     Route: 002
     Dates: start: 20080901
  5. LAUROMACROGOL 400/SODIUM OLEATE [Concomitant]
     Dosage: UNK
     Route: 042
     Dates: start: 20081011
  6. TRANXENE [Concomitant]
     Dosage: UNK
     Route: 042
     Dates: start: 20081012
  7. VORICONAZOLE [Suspect]
     Indication: ASPERGILLOSIS
     Dosage: 4 MG/KG, UNK
     Route: 042
     Dates: start: 20081013, end: 20081019
  8. VORICONAZOLE [Suspect]
     Dosage: 200 MG, 2X/DAY
     Route: 048
     Dates: start: 20081107, end: 20081120
  9. LASIX [Concomitant]
     Dosage: UNK
     Route: 042
     Dates: start: 20081008, end: 20081026
  10. BIAFINE [Concomitant]
     Dosage: UNK
     Route: 062
     Dates: start: 20080926
  11. NEUPOGEN [Concomitant]
     Dosage: UNK
     Dates: start: 20081009
  12. FIBRE, DIETARY [Concomitant]
     Dosage: UNK
     Dates: start: 20081017, end: 20081019
  13. SOLU-CORTEF [Concomitant]
     Dosage: UNK
     Dates: start: 20081006
  14. VORICONAZOLE [Suspect]
     Dosage: 200 MG, 2X/DAY
     Route: 042
     Dates: start: 20081020, end: 20081106
  15. NEXIUM [Concomitant]
     Route: 048
     Dates: start: 20081013
  16. TRAMADOL HCL [Concomitant]
     Dosage: UNK
     Route: 042
     Dates: start: 20081012, end: 20081021
  17. SOLUTIONS FOR PARENTERAL NUTRITION [Concomitant]
     Dosage: UNK
     Route: 048
     Dates: start: 20080926
  18. PLACEBO [Suspect]
     Indication: ASPERGILLOSIS
     Dosage: 100 UNK, UNK
     Route: 042
     Dates: start: 20081013, end: 20081019
  19. MAGNESIUM SULFATE [Concomitant]
     Dosage: UNK
     Route: 042
     Dates: start: 20080921, end: 20081127
  20. PIPERACILLIN [Concomitant]
     Dosage: UNK
     Route: 042
     Dates: start: 20081019, end: 20081021
  21. LITICAN [Concomitant]
     Dosage: UNK
     Route: 042
     Dates: start: 20080101, end: 20081025
  22. ZOVIRAX [Concomitant]
     Route: 042
     Dates: start: 20081003
  23. XYZAL [Concomitant]
     Dosage: UNK
     Route: 048
     Dates: start: 20081021
  24. BLINDED NO SUBJECT DRUG [Suspect]
     Indication: ASPERGILLOSIS
     Dosage: 100 UNK, UNK
     Route: 042
     Dates: start: 20081013, end: 20081019
  25. NICOTINE [Concomitant]
     Dosage: UNK
     Route: 062
     Dates: start: 20080918
  26. POLARAMINE [Concomitant]
     Dosage: UNK
     Dates: start: 20081006
  27. POTASSIUM CHLORIDE [Concomitant]
     Route: 042
     Dates: start: 20080921
  28. CASPOFUNGIN [Concomitant]
     Dosage: UNK
     Route: 042
     Dates: start: 20081020, end: 20081030

REACTIONS (1)
  - ENCEPHALOPATHY [None]
